FAERS Safety Report 5122136-2 (Version None)
Quarter: 2006Q4

REPORT INFORMATION
  Report Type: 
  Country: None (occurrence: None)
  Receive Date: 20061006
  Receipt Date: 20060926
  Transmission Date: 20070319
  Serious: Yes (Death, Hospitalization)
  Sender: FDA-Public Use
  Company Number: FR-BOEHRINGER INGELHEIM GMBH, GERMANY-2006-FF-00925FF

PATIENT
  Sex: Female

DRUGS (4)
  1. APTIVUS [Suspect]
     Indication: HIV INFECTION
     Route: 048
     Dates: start: 20060201
  2. FUZEON [Concomitant]
     Indication: HIV INFECTION
  3. KIVEXA [Concomitant]
     Indication: HIV INFECTION
  4. TRUVADA [Concomitant]
     Indication: HIV INFECTION

REACTIONS (3)
  - CONVULSION [None]
  - DEATH [None]
  - TREATMENT NONCOMPLIANCE [None]
